FAERS Safety Report 20066089 (Version 2)
Quarter: 2021Q4

REPORT INFORMATION
  Report Type: Report from Study
  Country: FR (occurrence: FR)
  Receive Date: 20211114
  Receipt Date: 20211116
  Transmission Date: 20220303
  Serious: Yes (Hospitalization, Other)
  Sender: FDA-Public Use
  Company Number: FR-ABBVIE-21K-056-4156744-00

PATIENT
  Age: 69 Year
  Sex: Male

DRUGS (2)
  1. CARBIDOPA\LEVODOPA [Suspect]
     Active Substance: CARBIDOPA\LEVODOPA
     Indication: Parkinson^s disease
     Dosage: M D 4.7ML, CONTINUOUS FLOW RATE FROM 7AM-12PM 3ML/H, 12PM -7PM 3.3ML/H, 7PM-7AM 1ML/H
     Route: 050
     Dates: start: 201805
  2. CARBIDOPA\LEVODOPA [Suspect]
     Active Substance: CARBIDOPA\LEVODOPA

REACTIONS (3)
  - Hypophagia [Not Recovered/Not Resolved]
  - Fluid intake reduced [Not Recovered/Not Resolved]
  - Pneumonia aspiration [Not Recovered/Not Resolved]
